FAERS Safety Report 11211384 (Version 1)
Quarter: 2015Q2

REPORT INFORMATION
  Report Type: Spontaneous
  Country: US (occurrence: None)
  Receive Date: 20150619
  Receipt Date: 20150619
  Transmission Date: 20150821
  Serious: Yes (Other)
  Sender: FDA-Public Use
  Company Number: None

PATIENT
  Age: 42 Day
  Sex: Female
  Weight: 53.98 kg

DRUGS (12)
  1. ELAVIL [Concomitant]
     Active Substance: AMITRIPTYLINE HYDROCHLORIDE
  2. BENADRYL [Concomitant]
     Active Substance: DIPHENHYDRAMINE HYDROCHLORIDE
  3. ALLERGY MED [Concomitant]
  4. VITAMINS [Concomitant]
     Active Substance: VITAMINS
  5. SOMA [Concomitant]
     Active Substance: CARISOPRODOL
  6. MOTRIN [Concomitant]
     Active Substance: IBUPROFEN
  7. SUBUTEX [Suspect]
     Active Substance: BUPRENORPHINE HYDROCHLORIDE
     Indication: DRUG THERAPY
     Dosage: BUPRENORPHINE 2 MG  THREE TIMES DAILY  TAKEN UNDER THE TONGUE
     Route: 060
  8. CLONIDINE. [Concomitant]
     Active Substance: CLONIDINE
  9. XANAX [Concomitant]
     Active Substance: ALPRAZOLAM
  10. BABY ASPIRIN [Concomitant]
     Active Substance: ASPIRIN
  11. ATENOLOL. [Concomitant]
     Active Substance: ATENOLOL
  12. LUNESTA [Concomitant]
     Active Substance: ESZOPICLONE

REACTIONS (6)
  - Depression [None]
  - Weight decreased [None]
  - Panic disorder [None]
  - Insomnia [None]
  - Palpitations [None]
  - Abdominal discomfort [None]

NARRATIVE: CASE EVENT DATE: 20150618
